FAERS Safety Report 10462632 (Version 1)
Quarter: 2014Q3

REPORT INFORMATION
  Report Type: Spontaneous
  Country: VE (occurrence: VE)
  Receive Date: 20140918
  Receipt Date: 20140918
  Transmission Date: 20150326
  Serious: Yes (Other)
  Sender: FDA-Public Use
  Company Number: PHHY2014VE120594

PATIENT
  Sex: Male

DRUGS (5)
  1. FORADIL [Suspect]
     Active Substance: FORMOTEROL FUMARATE
     Indication: DYSPNOEA
     Dosage: 400 MG/12 UG, DAILY
     Route: 055
     Dates: start: 201401
  2. LORTADINE [Concomitant]
     Indication: BRONCHIAL DISORDER
     Dosage: EVERY DAY AT 12 PM
  3. MIFLONIDE [Suspect]
     Active Substance: BUDESONIDE
     Indication: DYSPNOEA
     Dosage: 400 MG/12 UG, DAILY
     Route: 055
     Dates: start: 201401
  4. BETAMETHASONE [Concomitant]
     Active Substance: BETAMETHASONE
     Indication: STEROID THERAPY
     Dosage: 0.25 MG/5MG UNK
     Dates: start: 201401
  5. NORVASC [Concomitant]
     Active Substance: AMLODIPINE BESYLATE
     Indication: HYPERTENSION
     Dosage: 5 MG, AT NIGHT AND IN THE MORNING
     Dates: start: 201401

REACTIONS (5)
  - Asthma [Unknown]
  - Hyperventilation [Unknown]
  - Depression [Unknown]
  - Dyspnoea [Unknown]
  - Dyspnoea exertional [Unknown]
